FAERS Safety Report 8936138 (Version 1)
Quarter: 2012Q4

REPORT INFORMATION
  Report Type: 
  Country: US (occurrence: US)
  Receive Date: 20121130
  Receipt Date: 20121130
  Transmission Date: 20130627
  Serious: No
  Sender: FDA-Public Use
  Company Number: US-009507513-1211USA011940

PATIENT
  Sex: Female

DRUGS (8)
  1. VICTRELIS [Suspect]
     Dosage: 4 DF, tid
     Route: 048
  2. RIBAVIRIN [Suspect]
  3. PEGINTRON [Suspect]
     Dosage: redipen
  4. CALCIUM (UNSPECIFIED) [Concomitant]
     Dosage: calcium 500
  5. VITAMIN B COMPLEX [Concomitant]
  6. VITAMINS (UNSPECIFIED) [Concomitant]
  7. OMEGA-3 [Concomitant]
  8. VITAMIN D (UNSPECIFIED) [Concomitant]
     Dosage: vitamin D TAB 400

REACTIONS (3)
  - Cystitis [Unknown]
  - Alopecia [Unknown]
  - Fatigue [Unknown]
